FAERS Safety Report 25022139 (Version 1)
Quarter: 2025Q1

REPORT INFORMATION
  Report Type: Spontaneous
  Country: MX (occurrence: MX)
  Receive Date: 20250228
  Receipt Date: 20250228
  Transmission Date: 20250408
  Serious: Yes (Hospitalization, Other)
  Sender: NOVO NORDISK
  Company Number: MX-NOVOPROD-1375057

PATIENT
  Sex: Male
  Weight: 98.5 kg

DRUGS (1)
  1. OZEMPIC [Suspect]
     Active Substance: SEMAGLUTIDE
     Indication: Weight control
     Dosage: 0.25 MG, QW
     Route: 058
     Dates: start: 20250117, end: 20250124

REACTIONS (10)
  - Gallbladder operation [Recovered/Resolved]
  - Pneumonia [Recovered/Resolved]
  - Liver function test increased [Recovered/Resolved]
  - Cholecystitis [Unknown]
  - Procedural pain [Unknown]
  - Musculoskeletal discomfort [Unknown]
  - Hunger [Recovered/Resolved]
  - Dyspepsia [Recovered/Resolved]
  - Constipation [Recovered/Resolved]
  - Off label use [Recovered/Resolved]

NARRATIVE: CASE EVENT DATE: 20250101
